FAERS Safety Report 24895533 (Version 3)
Quarter: 2025Q2

REPORT INFORMATION
  Report Type: Spontaneous
  Country: US (occurrence: US)
  Receive Date: 20250128
  Receipt Date: 20250427
  Transmission Date: 20250716
  Serious: No
  Sender: AMGEN
  Company Number: US-AMGEN-USASP2025012811

PATIENT
  Age: 68 Year
  Sex: Female
  Weight: 96 kg

DRUGS (2)
  1. REPATHA [Suspect]
     Active Substance: EVOLOCUMAB
     Indication: Hypercholesterolaemia
     Route: 065
     Dates: start: 20250121
  2. REPATHA [Suspect]
     Active Substance: EVOLOCUMAB
     Route: 065

REACTIONS (5)
  - Injection site pain [Not Recovered/Not Resolved]
  - Device difficult to use [Unknown]
  - Drug dose omission by device [Unknown]
  - Accidental exposure to product [Unknown]
  - Product communication issue [Unknown]

NARRATIVE: CASE EVENT DATE: 20250121
